FAERS Safety Report 4648533-7 (Version None)
Quarter: 2005Q2

REPORT INFORMATION
  Report Type: 
  Country: None (occurrence: None)
  Receive Date: 20050427
  Receipt Date: 20050412
  Transmission Date: 20051028
  Serious: Yes (Hospitalization)
  Sender: FDA-Public Use
  Company Number: 30799

PATIENT
  Age: 84 Year
  Sex: Male

DRUGS (6)
  1. FLUORESCITE [Suspect]
     Dosage: IV
     Route: 042
     Dates: start: 20041201, end: 20041201
  2. FLUORESCITE [Suspect]
     Dosage: IV
     Route: 042
     Dates: start: 20050301, end: 20050301
  3. ACETYL SALICYLIC ACID USP BAT [Concomitant]
  4. CAPTOPRIL [Concomitant]
  5. . [Concomitant]
  6. BELOC ZOK MITE [Concomitant]

REACTIONS (1)
  - PANCREATITIS ACUTE [None]
